FAERS Safety Report 22399847 (Version 3)
Quarter: 2024Q2

REPORT INFORMATION
  Report Type: Report from Study
  Country: IT (occurrence: IT)
  Receive Date: 20230602
  Receipt Date: 20240430
  Transmission Date: 20240715
  Serious: Yes (Life-Threatening, Other)
  Sender: FDA-Public Use
  Company Number: IT-002147023-NVSC2022IT013815

PATIENT

DRUGS (7)
  1. RUXOLITINIB [Suspect]
     Active Substance: RUXOLITINIB
     Indication: Myelofibrosis
     Dosage: 10 MG, BID
     Route: 048
     Dates: start: 20211104
  2. RUXOLITINIB [Suspect]
     Active Substance: RUXOLITINIB
     Dosage: 20 TOTAL DAILY DOSE
     Route: 065
     Dates: start: 20211104, end: 20220207
  3. RUXOLITINIB [Suspect]
     Active Substance: RUXOLITINIB
     Dosage: 30 TOTAL DAILY DOSE
     Route: 065
     Dates: start: 20220208, end: 20220316
  4. RUXOLITINIB [Suspect]
     Active Substance: RUXOLITINIB
     Dosage: 20 TOTAL DAILY DOSE
     Route: 065
     Dates: start: 20220317, end: 20220724
  5. RUXOLITINIB [Suspect]
     Active Substance: RUXOLITINIB
     Dosage: 15 TOTAL DAILY DOSE
     Route: 065
     Dates: start: 20220725, end: 20221116
  6. RUXOLITINIB [Suspect]
     Active Substance: RUXOLITINIB
     Dosage: 14 TOTAL DAILY DOSE
     Route: 065
     Dates: start: 20221117
  7. RUXOLITINIB [Suspect]
     Active Substance: RUXOLITINIB
     Dosage: 14 TOTAL DAILY DOSE
     Route: 065
     Dates: start: 20221117

REACTIONS (13)
  - Anaemia [Unknown]
  - Hypertension [Unknown]
  - Pneumonia bacterial [Unknown]
  - Bone pain [Unknown]
  - COVID-19 [Unknown]
  - Nasopharyngitis [Unknown]
  - Cystitis [Unknown]
  - Pyrexia [Unknown]
  - Streptococcus test positive [Unknown]
  - Pulmonary embolism [Recovered/Resolved with Sequelae]
  - Candida infection [Unknown]
  - Stomatitis [Unknown]
  - Drug ineffective [Unknown]

NARRATIVE: CASE EVENT DATE: 20211216
